FAERS Safety Report 5228081-6 (Version None)
Quarter: 2007Q1

REPORT INFORMATION
  Report Type: 
  Country: None (occurrence: None)
  Receive Date: 20061201
  Receipt Date: 20060928
  Transmission Date: 20070707
  Serious: No
  Sender: FDA-Public Use
  Company Number: US200609007460

PATIENT
  Age: 51 Year
  Sex: Female

DRUGS (3)
  1. CYMBALTA [Suspect]
     Indication: DEPRESSION
     Dosage: 30 MG, DAILY (1/D), ORAL
     Route: 048
     Dates: start: 20060926
  2. WELLBUTRIN [Concomitant]
  3. CLARITIN /USA/ (LORATADINE) [Concomitant]

REACTIONS (4)
  - DREAMY STATE [None]
  - MUSCLE TIGHTNESS [None]
  - PERIPHERAL COLDNESS [None]
  - YAWNING [None]
